FAERS Safety Report 16444820 (Version 1)
Quarter: 2019Q2

REPORT INFORMATION
  Report Type: Spontaneous
  Country: BG (occurrence: BG)
  Receive Date: 20190618
  Receipt Date: 20190618
  Transmission Date: 20190711
  Serious: Yes (Death)
  Sender: FDA-Public Use
  Company Number: BG-ROCHE-2336337

PATIENT
  Age: 76 Year
  Sex: Female

DRUGS (30)
  1. SODIUM CHLORIDE. [Concomitant]
     Active Substance: SODIUM CHLORIDE
     Dosage: 500 ML X 1 BAG - 2 DAYS AND 2X1 BAG 3 DAYS?2X250 ML X 1 DAY
     Route: 065
  2. NITRONAL [Concomitant]
     Active Substance: NITROGLYCERIN
     Indication: PRODUCT USED FOR UNKNOWN INDICATION
     Dosage: DAILY DOSE - 1 FL. PER INFUSION
     Route: 065
  3. UNASYN [AMPICILLIN SODIUM;SULBACTAM SODIUM] [Concomitant]
     Dosage: 2X1,5 MG 2  DAYS
     Route: 065
  4. LECALPIN [Concomitant]
     Dosage: X1 TABLET IN THE EVENING
     Route: 065
  5. ACTILYSE [Suspect]
     Active Substance: ALTEPLASE
     Indication: CEREBROVASCULAR ACCIDENT
     Dosage: X7,5+69 MG
     Route: 065
     Dates: start: 20171129, end: 20171129
  6. SODIUM CHLORIDE. [Concomitant]
     Active Substance: SODIUM CHLORIDE
     Dosage: 500 ML X 1 BAG 7 DAYS
     Route: 065
  7. FRAXIPARINE [Concomitant]
     Active Substance: NADROPARIN CALCIUM
     Indication: PRODUCT USED FOR UNKNOWN INDICATION
     Dosage: X0,6 ML
     Route: 065
  8. TRIFAS [TORASEMIDE] [Concomitant]
     Indication: PRODUCT USED FOR UNKNOWN INDICATION
     Dosage: DAILY DOSE: X1 AMP (AMPULE)
     Route: 065
  9. CEFTRIAXONE. [Concomitant]
     Active Substance: CEFTRIAXONE
     Indication: PRODUCT USED FOR UNKNOWN INDICATION
     Route: 065
  10. VALTENSIN [Concomitant]
     Dosage: 2X1 TABLET
     Route: 065
  11. METRONIDAZOLE. [Concomitant]
     Active Substance: METRONIDAZOLE
     Dosage: 2X500 MG 2 DAYS
     Route: 065
  12. UNASYN [AMPICILLIN SODIUM;SULBACTAM SODIUM] [Concomitant]
     Dosage: 3, 1.5 MG;
     Route: 065
  13. SODIUM CHLORIDE. [Concomitant]
     Active Substance: SODIUM CHLORIDE
     Indication: PRODUCT USED FOR UNKNOWN INDICATION
     Dosage: 500 ML/2X500
     Route: 065
  14. TRIFAS [TORASEMIDE] [Concomitant]
     Dosage: X1 AMPOULE 7 DAYS
     Route: 065
  15. ACTILYSE [Suspect]
     Active Substance: ALTEPLASE
     Indication: ARRHYTHMIA PROPHYLAXIS
  16. NOOTROPIL [Concomitant]
     Active Substance: PIRACETAM
     Indication: PRODUCT USED FOR UNKNOWN INDICATION
     Route: 065
  17. CHLOPHAZOLIN [Concomitant]
     Active Substance: CLONIDINE HYDROCHLORIDE
     Indication: PRODUCT USED FOR UNKNOWN INDICATION
     Dosage: DAILY DOSE : X1/2 AMPOULE. / 2X1/2 AMPOULE
     Route: 065
  18. GLUCOSE [Concomitant]
     Active Substance: DEXTROSE
     Indication: PRODUCT USED FOR UNKNOWN INDICATION
     Dosage: DAILY DOSE: 5% X500 ML
     Route: 065
  19. CALCIUM GLUCONATE. [Concomitant]
     Active Substance: CALCIUM GLUCONATE
     Dosage: X2 AMPOULE - 2 DAYS
     Route: 065
  20. BLOKBIS [Concomitant]
     Dosage: 5 MG X1 TABLET IN THE MORNING
     Route: 065
  21. SOMAZINA [CITICOLINE] [Concomitant]
     Indication: PRODUCT USED FOR UNKNOWN INDICATION
     Dosage: DAILY DOSE: X1 AMPOULE
     Route: 065
  22. TRIFAS [TORASEMIDE] [Concomitant]
     Dosage: X1 AMPOULE
     Route: 042
     Dates: start: 20171205
  23. MANNITOL. [Concomitant]
     Active Substance: MANNITOL
     Dosage: 10 % 2X250 ML - 5 DAYS
     Route: 065
  24. GABEXATE MESILATE [Concomitant]
     Active Substance: GABEXATE MESYLATE
     Indication: PRODUCT USED FOR UNKNOWN INDICATION
     Dosage: DAILY DOSE: X1 FL
     Route: 065
  25. SOMAZINA [CITICOLINE] [Concomitant]
     Dosage: X1 AMPOULE - 2 DAYS AND 2X1 AMPOULE - 4 DAYS
     Route: 065
  26. CHLOPHAZOLIN [Concomitant]
     Active Substance: CLONIDINE HYDROCHLORIDE
     Dosage: X1 AMPOULE1 DAY, X1/2 AMPOULE1 DAY AND 2X1 AMPOULE 2 DAYS
     Route: 065
  27. SINECOD [Concomitant]
     Active Substance: BUTAMIRATE CITRATE
     Dosage: 3X1/2  TABLET
     Route: 065
  28. VICETIN [Concomitant]
     Indication: PRODUCT USED FOR UNKNOWN INDICATION
     Dosage: DAILY DOSE: X1 AMPOULE
     Route: 065
  29. VITAMIN C [Concomitant]
     Active Substance: ASCORBIC ACID
     Dosage: X10 CC 4 DAYS?X10 CC - 3 DAYS
     Route: 065
  30. ANALGINE [Concomitant]
     Dosage: X1 AMPOULE - 3 DAYS
     Route: 065

REACTIONS (12)
  - Cerebral haemorrhage [Fatal]
  - Body temperature increased [Fatal]
  - Hemiparesis [Fatal]
  - General physical health deterioration [Fatal]
  - Hypertension [Fatal]
  - Pulmonary embolism [Fatal]
  - Acute respiratory failure [Fatal]
  - Coma [Fatal]
  - Aphasia [Fatal]
  - Somnolence [Fatal]
  - Pneumonia [Fatal]
  - Apnoea [Fatal]

NARRATIVE: CASE EVENT DATE: 20171130
